FAERS Safety Report 6028028-9 (Version None)
Quarter: 2008Q4

REPORT INFORMATION
  Report Type: 
  Country: None (occurrence: None)
  Receive Date: 20081224
  Receipt Date: 20081217
  Transmission Date: 20090506
  Serious: Yes (Hospitalization)
  Sender: FDA-Public Use
  Company Number: WAES 0811FRA00029

PATIENT
  Age: 67 Year
  Sex: Male

DRUGS (20)
  1. CAP VORINOSTAT [Suspect]
     Indication: NON-SMALL CELL LUNG CANCER
     Dosage: 400 MG/DAILY PO
     Route: 048
     Dates: start: 20081014, end: 20081023
  2. CAP VORINOSTAT [Suspect]
     Indication: NON-SMALL CELL LUNG CANCER
     Dosage: 400 MG/DAILY PO
     Route: 048
     Dates: start: 20081104, end: 20081113
  3. CAP VORINOSTAT [Suspect]
     Indication: NON-SMALL CELL LUNG CANCER
     Dosage: 400 MG/DAILY PO
     Route: 048
     Dates: start: 20081209, end: 20081211
  4. GEMCITABINE [Suspect]
     Indication: NON-SMALL CELL LUNG CANCER
     Dosage: 1250 MG/M2/D /IV;  75 MG/M2/D /IV
     Route: 042
     Dates: start: 20081016, end: 20081016
  5. GEMCITABINE [Suspect]
     Indication: NON-SMALL CELL LUNG CANCER
     Dosage: 1250 MG/M2/D /IV;  75 MG/M2/D /IV
     Route: 042
     Dates: start: 20081023, end: 20081023
  6. GEMCITABINE [Suspect]
     Indication: NON-SMALL CELL LUNG CANCER
     Dosage: 1250 MG/M2/D /IV;  75 MG/M2/D /IV
     Route: 042
     Dates: start: 20081106, end: 20081106
  7. GEMCITABINE [Suspect]
     Indication: NON-SMALL CELL LUNG CANCER
     Dosage: 1250 MG/M2/D /IV;  75 MG/M2/D /IV
     Route: 042
     Dates: start: 20081113, end: 20081113
  8. CISPLATIN [Suspect]
     Indication: NON-SMALL CELL LUNG CANCER
     Dosage: 75 MG/M2/D /IV
     Route: 042
     Dates: start: 20081016, end: 20081016
  9. CISPLATIN [Suspect]
     Indication: NON-SMALL CELL LUNG CANCER
     Dosage: 75 MG/M2/D /IV
     Route: 042
     Dates: start: 20081106, end: 20081106
  10. APREPITANT [Concomitant]
  11. BROMAZEPAM [Concomitant]
  12. CLONAZEPAM [Concomitant]
  13. FENTANYL-100 [Concomitant]
  14. FLUVASTATIN SODIUM [Concomitant]
  15. FONDAPARINUX SODIUM [Concomitant]
  16. MORPHINE SULFATE [Concomitant]
  17. ONDANSETRON HYDROCHLORIDE [Concomitant]
  18. ORNITHINE KETOGLUTARATE [Concomitant]
  19. POLYETHYLENE GLYCOL 4000 [Concomitant]
  20. PREDNISONE TAB [Concomitant]

REACTIONS (14)
  - ABDOMINAL PAIN UPPER [None]
  - ANAEMIA [None]
  - ANOREXIA [None]
  - ASTHENIA [None]
  - BRONCHOPNEUMONIA [None]
  - CONFUSIONAL STATE [None]
  - GENERAL PHYSICAL HEALTH DETERIORATION [None]
  - HYPERTHERMIA [None]
  - JUGULAR VEIN THROMBOSIS [None]
  - LUNG INFECTION [None]
  - NEUTROPENIA [None]
  - PHLEBITIS [None]
  - THROMBOCYTOPENIA [None]
  - WEIGHT DECREASED [None]
